FAERS Safety Report 7283574-5 (Version None)
Quarter: 2011Q1

REPORT INFORMATION
  Report Type: 
  Country: None (occurrence: None)
  Receive Date: 20110209
  Receipt Date: 20110204
  Transmission Date: 20110831
  Serious: Yes (Hospitalization)
  Sender: FDA-Public Use
  Company Number: A0894524A

PATIENT
  Age: 54 Year
  Sex: Male

DRUGS (8)
  1. ATENOLOL [Concomitant]
  2. ADVAIR [Suspect]
     Indication: CHRONIC OBSTRUCTIVE PULMONARY DISEASE
     Dosage: 1PUFF TWICE PER DAY
     Route: 055
     Dates: start: 20100314
  3. ASPIRIN [Concomitant]
  4. HYDROCHLOROTHIAZIDE [Concomitant]
  5. PRILOSEC [Concomitant]
  6. PROZAC [Concomitant]
  7. LISINOPRIL [Concomitant]
  8. VENTOLIN [Concomitant]

REACTIONS (5)
  - PULMONARY THROMBOSIS [None]
  - POST PROCEDURAL COMPLICATION [None]
  - THROMBOSIS [None]
  - CORONARY ARTERY BYPASS [None]
  - CARDIAC DISORDER [None]
